FAERS Safety Report 8933532 (Version 1)
Quarter: 2012Q4

REPORT INFORMATION
  Report Type: 
  Country: US (occurrence: US)
  Receive Date: 20121129
  Receipt Date: 20121129
  Transmission Date: 20130627
  Serious: Yes (Death)
  Sender: FDA-Public Use
  Company Number: US-PFIZER INC-2012298904

PATIENT
  Age: 56 Year
  Sex: Female

DRUGS (1)
  1. RAPAMUNE [Suspect]
     Dosage: 1 mg/ml, UNK
     Route: 048
     Dates: start: 20120213

REACTIONS (1)
  - Neoplasm malignant [Fatal]
